FAERS Safety Report 7369231-5 (Version None)
Quarter: 2011Q1

REPORT INFORMATION
  Report Type: 
  Country: None (occurrence: None)
  Receive Date: 20110321
  Receipt Date: 20110321
  Transmission Date: 20110831
  Serious: Yes (Other)
  Sender: FDA-Public Use
  Company Number: None

PATIENT
  Age: 59 Year
  Sex: Male
  Weight: 60.78 kg

DRUGS (5)
  1. ZOFRAN [Concomitant]
  2. ABRAXANE [Suspect]
     Indication: SQUAMOUS CELL CARCINOMA
     Dosage: 20 MG/M2, WEEKLY, IV
     Route: 042
     Dates: start: 20110119, end: 20110302
  3. CISPLATIN [Suspect]
     Indication: SQUAMOUS CELL CARCINOMA
     Dosage: 20 MG/M2, WEEKLY, IV
     Route: 042
     Dates: start: 20110119, end: 20110302
  4. COMPAZINE [Concomitant]
  5. DECADRON [Concomitant]

REACTIONS (3)
  - HYPONATRAEMIA [None]
  - LYMPHOPENIA [None]
  - DRUG DOSE OMISSION [None]
